FAERS Safety Report 8322677-0 (Version None)
Quarter: 2012Q2

REPORT INFORMATION
  Report Type: 
  Country: None (occurrence: None)
  Receive Date: 20120430
  Receipt Date: 20120425
  Transmission Date: 20120825
  Serious: Yes (Other)
  Sender: FDA-Public Use
  Company Number: US-MERCK-1204USA04094

PATIENT
  Age: 75 Year
  Sex: Female

DRUGS (1)
  1. FOSAMAX [Suspect]
     Indication: BONE DISORDER
     Route: 048
     Dates: start: 20060101, end: 20111201

REACTIONS (2)
  - UPPER LIMB FRACTURE [None]
  - FEMUR FRACTURE [None]
